FAERS Safety Report 24903725 (Version 2)
Quarter: 2025Q3

REPORT INFORMATION
  Report Type: Report from Study
  Country: US (occurrence: US)
  Receive Date: 20250130
  Receipt Date: 20250809
  Transmission Date: 20251020
  Serious: Yes (Hospitalization, Other)
  Sender: ALEXION PHARMACEUTICALS
  Company Number: US-AstraZeneca-CH-00791085A

PATIENT
  Sex: Female

DRUGS (1)
  1. TICAGRELOR [Suspect]
     Active Substance: TICAGRELOR

REACTIONS (5)
  - Coronary artery occlusion [Unknown]
  - General physical condition abnormal [Unknown]
  - Fatigue [Unknown]
  - Limb injury [Unknown]
  - Muscular weakness [Unknown]
